FAERS Safety Report 4611777-4 (Version None)
Quarter: 2005Q1

REPORT INFORMATION
  Report Type: 
  Country: None (occurrence: None)
  Receive Date: 20050308
  Receipt Date: 20050111
  Transmission Date: 20050727
  Serious: Yes (Other)
  Sender: FDA-Public Use
  Company Number: 2004UW24811

PATIENT
  Age: 71 Year
  Sex: Male
  Weight: 83.914 kg

DRUGS (4)
  1. CRESTOR [Suspect]
     Indication: BLOOD CHOLESTEROL INCREASED
     Dosage: 10 MG PO
     Route: 048
     Dates: start: 20040101, end: 20040101
  2. CRESTOR [Suspect]
     Indication: BLOOD CHOLESTEROL INCREASED
     Dosage: 5 MG PO
     Route: 048
     Dates: start: 20040811, end: 20041024
  3. CARDURA [Concomitant]
  4. ZANTAC [Concomitant]

REACTIONS (3)
  - ASTHENIA [None]
  - HEAD DISCOMFORT [None]
  - MYALGIA [None]
